FAERS Safety Report 8790806 (Version 1)
Quarter: 2012Q4

REPORT INFORMATION
  Report Type: Spontaneous
  Country: IE (occurrence: None)
  Receive Date: 20120910
  Receipt Date: 20120910
  Transmission Date: 20130627
  Serious: Yes (Other)
  Sender: FDA-Public Use
  Company Number: DSA_59225_2012

PATIENT

DRUGS (2)
  1. FLUOROURACIL [Suspect]
     Indication: NEUROENDOCRINE TUMOUR
     Dosage: (5 doses of bolus 400 mg/m2 on days 36-40 intravenous bolus)
     Route: 040
  2. STREPTOZOCIN [Suspect]
     Indication: NEUROENDOCRINE TUMOUR
     Dosage: (500 mg/m2 on days 1-5)

REACTIONS (4)
  - Intestinal obstruction [None]
  - Toxicity to various agents [None]
  - Malignant neoplasm progression [None]
  - Neuroendocrine tumour [None]
